FAERS Safety Report 6266575-5 (Version None)
Quarter: 2009Q3

REPORT INFORMATION
  Report Type: 
  Country: None (occurrence: None)
  Receive Date: 20090710
  Receipt Date: 20090616
  Transmission Date: 20100115
  Serious: Yes (Hospitalization, Other)
  Sender: FDA-Public Use
  Company Number: ADE2009-0690

PATIENT
  Age: 32 Year
  Sex: Female
  Weight: 43.76 kg

DRUGS (2)
  1. AMOXICILLIN [Suspect]
     Indication: PNEUMONIA
     Dates: start: 20090101
  2. DILANTIN [Suspect]
     Indication: EPILEPSY

REACTIONS (5)
  - ANTICONVULSANT DRUG LEVEL ABOVE THERAPEUTIC [None]
  - CAROTID PULSE INCREASED [None]
  - CONVULSION [None]
  - HYPERHIDROSIS [None]
  - PNEUMONIA [None]
